FAERS Safety Report 23775146 (Version 1)
Quarter: 2024Q2

REPORT INFORMATION
  Report Type: Spontaneous
  Country: CN (occurrence: CN)
  Receive Date: 20240423
  Receipt Date: 20240423
  Transmission Date: 20240716
  Serious: Yes (Other)
  Sender: FDA-Public Use
  Company Number: CN-NAPPMUNDI-GBR-2024-0115936

PATIENT
  Age: 50 Year
  Sex: Male
  Weight: 48 kg

DRUGS (3)
  1. OXYCONTIN [Suspect]
     Active Substance: OXYCODONE HYDROCHLORIDE
     Indication: Pain
     Dosage: 20 MILLIGRAM, BID
     Route: 048
     Dates: start: 20220516, end: 20220528
  2. DOMPERIDONE [Suspect]
     Active Substance: DOMPERIDONE
     Indication: Dyspepsia
     Dosage: 10 MILLIGRAM, TID
     Route: 048
     Dates: start: 20220513, end: 20220526
  3. Live bacillus cereus [Concomitant]
     Indication: Abdominal discomfort
     Dosage: 0.75 GRAM, TID
     Route: 048
     Dates: start: 20220513, end: 20220517

REACTIONS (2)
  - Blood bilirubin increased [Recovering/Resolving]
  - Liver injury [Recovering/Resolving]

NARRATIVE: CASE EVENT DATE: 20220518
